FAERS Safety Report 7305541-5 (Version None)
Quarter: 2011Q1

REPORT INFORMATION
  Report Type: 
  Country: None (occurrence: None)
  Receive Date: 20110222
  Receipt Date: 20100728
  Transmission Date: 20110831
  Serious: No
  Sender: FDA-Public Use
  Company Number: US-MYLANLABS-2010S1012383

PATIENT
  Age: 42 Year
  Sex: Female
  Weight: 65.77 kg

DRUGS (3)
  1. ALPRAZOLAM [Suspect]
     Route: 048
     Dates: end: 20100707
  2. M.V.I. [Concomitant]
  3. ALPRAZOLAM [Suspect]
     Indication: INSOMNIA
     Route: 048
     Dates: start: 20090201, end: 20100601

REACTIONS (8)
  - ABDOMINAL DISCOMFORT [None]
  - OCULAR HYPERAEMIA [None]
  - NONSPECIFIC REACTION [None]
  - DRY EYE [None]
  - INSOMNIA [None]
  - EYE PRURITUS [None]
  - PALPITATIONS [None]
  - DRUG INEFFECTIVE FOR UNAPPROVED INDICATION [None]
